FAERS Safety Report 9527498 (Version 1)
Quarter: 2013Q1

REPORT INFORMATION
  Report Type: Spontaneous
  Country: US (occurrence: None)
  Receive Date: 20130314
  Receipt Date: 20130314
  Transmission Date: 20140127
  Serious: No
  Sender: FDA-Public Use
  Company Number: 1210USA001033

PATIENT
  Age: 53 Year
  Sex: Male

DRUGS (3)
  1. RIBAVIRIN(RIBAVIRIN)CAPSULE [Suspect]
     Dates: start: 20120921
  2. PEG-INTRON(PEGINTERFERON ALFA-2B) POWDER FOR INJECTION [Suspect]
     Indication: HEPATITIS C
     Dates: start: 20120921
  3. VICTRELIS(BOCEPREVIR CAPSULE [Suspect]
     Indication: HEPATITIS C
     Dates: start: 20121020

REACTIONS (2)
  - Injection site erythema [None]
  - Vision blurred [None]
